FAERS Safety Report 25955409 (Version 1)
Quarter: 2025Q4

REPORT INFORMATION
  Report Type: Spontaneous
  Country: CN (occurrence: CN)
  Receive Date: 20251024
  Receipt Date: 20251024
  Transmission Date: 20260117
  Serious: Yes (Life-Threatening, Other)
  Sender: DR REDDYS
  Company Number: None

PATIENT
  Age: 56 Year
  Sex: Female

DRUGS (10)
  1. LENALIDOMIDE [Suspect]
     Active Substance: LENALIDOMIDE
     Indication: Haemophagocytic lymphohistiocytosis
     Dosage: START DATE: 05-NOV-2021
     Dates: end: 202201
  2. LENALIDOMIDE [Suspect]
     Active Substance: LENALIDOMIDE
     Indication: Diffuse large B-cell lymphoma refractory
  3. DOXORUBICIN HYDROCHLORIDE [Suspect]
     Active Substance: DOXORUBICIN HYDROCHLORIDE
     Indication: Diffuse large B-cell lymphoma refractory
     Dosage: ON DAY 1?START DATE: 05-NOV-2021
     Dates: end: 202201
  4. DOXORUBICIN HYDROCHLORIDE [Suspect]
     Active Substance: DOXORUBICIN HYDROCHLORIDE
     Indication: Haemophagocytic lymphohistiocytosis
  5. ZANUBRUTINIB [Suspect]
     Active Substance: ZANUBRUTINIB
     Indication: Diffuse large B-cell lymphoma refractory
     Dosage: 160 MG TWICE DAILY ORALLY ON DAYS 1-14?START DATE: 05-NOV-2021
     Route: 048
     Dates: end: 202201
  6. ZANUBRUTINIB [Suspect]
     Active Substance: ZANUBRUTINIB
     Indication: Haemophagocytic lymphohistiocytosis
  7. PACLITAXEL [Suspect]
     Active Substance: PACLITAXEL
     Indication: Haemophagocytic lymphohistiocytosis
     Dosage: ON DAY 5?START DATE: 05-NOV-2021
     Dates: end: 202201
  8. PACLITAXEL [Suspect]
     Active Substance: PACLITAXEL
     Indication: Diffuse large B-cell lymphoma refractory
  9. DECITABINE [Suspect]
     Active Substance: DECITABINE
     Indication: Haemophagocytic lymphohistiocytosis
     Dosage: ON DAYS 1-5?START DATE: 05-NOV-2021
     Dates: end: 202201
  10. DECITABINE [Suspect]
     Active Substance: DECITABINE
     Indication: Diffuse large B-cell lymphoma refractory

REACTIONS (3)
  - Myelosuppression [Unknown]
  - Perineal ulceration [Unknown]
  - Skin ulcer [Unknown]

NARRATIVE: CASE EVENT DATE: 20210101
